FAERS Safety Report 21482807 (Version 1)
Quarter: 2022Q4

REPORT INFORMATION
  Report Type: Spontaneous
  Country: US (occurrence: US)
  Receive Date: 20221020
  Receipt Date: 20221020
  Transmission Date: 20230113
  Serious: Yes (Hospitalization, Other)
  Sender: FDA-Public Use
  Company Number: US-BRISTOL-MYERS SQUIBB COMPANY-2022-123308

PATIENT
  Age: 90 Year
  Sex: Male
  Weight: 67.131 kg

DRUGS (2)
  1. ELIQUIS [Suspect]
     Active Substance: APIXABAN
     Indication: Cerebrovascular accident prophylaxis
     Dosage: DOSE : ONE;
     Route: 048
     Dates: start: 202111
  2. ELIQUIS [Suspect]
     Active Substance: APIXABAN
     Dosage: DOSE : ONE;     FREQ : TWICE A DAY
     Route: 065
     Dates: start: 202205

REACTIONS (2)
  - Cardiac valve disease [Unknown]
  - Rash [Unknown]

NARRATIVE: CASE EVENT DATE: 20220501
